FAERS Safety Report 14923032 (Version 2)
Quarter: 2018Q2

REPORT INFORMATION
  Report Type: Spontaneous
  Country: PL (occurrence: PL)
  Receive Date: 20180522
  Receipt Date: 20180618
  Transmission Date: 20180711
  Serious: Yes (Other)
  Sender: FDA-Public Use
  Company Number: PHHY2018PL004900

PATIENT
  Age: 35 Year
  Sex: Female
  Weight: 89 kg

DRUGS (6)
  1. DOCETAXEL. [Suspect]
     Active Substance: DOCETAXEL
     Indication: HER-2 POSITIVE BREAST CANCER
     Dosage: 150 MG, 3WEEK
     Route: 042
     Dates: start: 20170320, end: 20170710
  2. ZOLEDRONIC ACID [Concomitant]
     Active Substance: ZOLEDRONIC ACID
     Indication: HER-2 POSITIVE BREAST CANCER
     Route: 065
  3. PERJETA [Suspect]
     Active Substance: PERTUZUMAB
     Indication: HER-2 POSITIVE BREAST CANCER
     Dosage: 840 MG/FIRST DOSE, THEN NEXT 420 MG INFUSION
     Route: 042
     Dates: start: 20170320, end: 20170918
  4. EUTHYROX N [Concomitant]
     Active Substance: LEVOTHYROXINE SODIUM
     Indication: HYPOTHYROIDISM
     Dosage: 0.5 DF, QD (0.5 TABLET DAILY)
     Route: 065
  5. HERCEPTIN [Suspect]
     Active Substance: TRASTUZUMAB
     Indication: HER-2 POSITIVE BREAST CANCER
     Dosage: 712 MG FIRST ADMINISTRATION, 534 MG NEXT
     Route: 042
     Dates: start: 20170320, end: 20170918
  6. PACLITAXEL. [Suspect]
     Active Substance: PACLITAXEL
     Indication: HER-2 POSITIVE BREAST CANCER
     Dosage: 8 ADMINISTRATIONS
     Route: 065

REACTIONS (7)
  - Bronchitis [Unknown]
  - Bone pain [Unknown]
  - Cough [Unknown]
  - Hepatic neoplasm [Unknown]
  - Metastases to lung [Unknown]
  - Metastases to bone [Unknown]
  - Polyneuropathy [Unknown]
